FAERS Safety Report 17848205 (Version 1)
Quarter: 2020Q2

REPORT INFORMATION
  Report Type: Spontaneous
  Country: AU (occurrence: AU)
  Receive Date: 20200601
  Receipt Date: 20200601
  Transmission Date: 20200714
  Serious: Yes (Hospitalization)
  Sender: FDA-Public Use
  Company Number: AU-ELI_LILLY_AND_COMPANY-AU202005007894

PATIENT
  Age: 70 Year
  Sex: Female

DRUGS (9)
  1. OLANZAPINE. [Suspect]
     Active Substance: OLANZAPINE
     Indication: SCHIZOPHRENIA
     Dosage: 25 MG, EACH EVENING
     Route: 065
  2. AMOXICILLIN. [Suspect]
     Active Substance: AMOXICILLIN
     Dosage: 1500 MG, UNKNOWN
     Route: 065
  3. COLECALCIFEROL [Suspect]
     Active Substance: CHOLECALCIFEROL
     Indication: PRODUCT USED FOR UNKNOWN INDICATION
     Dosage: 1000 U, EACH MORNING
     Route: 065
  4. DENCORUB [CAMPHOR\MENTHOL\METHYL SALICYLATE] [Suspect]
     Active Substance: CAMPHOR\MENTHOL\METHYL SALICYLATE
     Indication: PRODUCT USED FOR UNKNOWN INDICATION
     Dosage: UNK, PRN
     Route: 065
  5. VITAMIN B12 [Suspect]
     Active Substance: CYANOCOBALAMIN
     Indication: PRODUCT USED FOR UNKNOWN INDICATION
     Dosage: 100 UG, EACH MORNING
     Route: 065
  6. AMOXICILLIN. [Suspect]
     Active Substance: AMOXICILLIN
     Indication: SPLENECTOMY
     Dosage: 250 MG, EACH MORNING
     Route: 065
  7. HYDROZOLE [Suspect]
     Active Substance: CLOTRIMAZOLE\HYDROCORTISONE
     Indication: PRODUCT USED FOR UNKNOWN INDICATION
     Dosage: UNK, BID
     Route: 065
  8. OMEPRAZOLE. [Suspect]
     Active Substance: OMEPRAZOLE
     Indication: PRODUCT USED FOR UNKNOWN INDICATION
     Dosage: 20 MG, EACH MORNING
     Route: 065
  9. IRON [Suspect]
     Active Substance: IRON
     Indication: IRON DEFICIENCY ANAEMIA
     Dosage: UNK, UNKNOWN
     Route: 065

REACTIONS (16)
  - Hyperparathyroidism [Unknown]
  - Balance disorder [Unknown]
  - Platelet count increased [Unknown]
  - Neutrophilia [Unknown]
  - Sepsis [Recovering/Resolving]
  - Anal incontinence [Unknown]
  - Urinary incontinence [Unknown]
  - Hypercalcaemia [Unknown]
  - Abnormal behaviour [Unknown]
  - Delirium [Recovering/Resolving]
  - Hyperkalaemia [Unknown]
  - Pain [Unknown]
  - Mood swings [Unknown]
  - Confusional state [Unknown]
  - Urinary tract infection [Recovering/Resolving]
  - Dehydration [Unknown]

NARRATIVE: CASE EVENT DATE: 201904
